FAERS Safety Report 18338269 (Version 1)
Quarter: 2020Q4

REPORT INFORMATION
  Report Type: Report from Study
  Country: US (occurrence: US)
  Receive Date: 20201002
  Receipt Date: 20201002
  Transmission Date: 20210113
  Serious: No
  Sender: FDA-Public Use
  Company Number: US-AGIOS-2009US02168

PATIENT

DRUGS (2)
  1. TIBSOVO [Suspect]
     Active Substance: IVOSIDENIB
     Indication: PULMONARY SARCOIDOSIS
     Dosage: 250MG, 2 TABLETS (500MG) DAILY
     Route: 048
     Dates: start: 20200829
  2. TIBSOVO [Suspect]
     Active Substance: IVOSIDENIB
     Indication: ISOCITRATE DEHYDROGENASE GENE MUTATION

REACTIONS (5)
  - Nausea [Unknown]
  - Vomiting [Unknown]
  - Retching [Unknown]
  - Cough [Unknown]
  - Off label use [Not Recovered/Not Resolved]

NARRATIVE: CASE EVENT DATE: 20200829
